FAERS Safety Report 18484047 (Version 2)
Quarter: 2020Q4

REPORT INFORMATION
  Report Type: Other
  Country: GB (occurrence: GB)
  Receive Date: 20201109
  Receipt Date: 20201222
  Transmission Date: 20210114
  Serious: Yes (Hospitalization, Other)
  Sender: FDA-Public Use
  Company Number: GB-ROCHE-2118116

PATIENT
  Sex: Female

DRUGS (2)
  1. ROACTEMRA [Suspect]
     Active Substance: TOCILIZUMAB
     Indication: RHEUMATOID ARTHRITIS
     Route: 058
     Dates: start: 20170227
  2. ROACTEMRA [Suspect]
     Active Substance: TOCILIZUMAB
     Route: 058
     Dates: start: 2019

REACTIONS (17)
  - Productive cough [Unknown]
  - Sensory loss [Unknown]
  - Immunodeficiency [Unknown]
  - Nasopharyngitis [Unknown]
  - Pseudomonas infection [Unknown]
  - Lower respiratory tract infection [Unknown]
  - Ear infection [Unknown]
  - Drug ineffective [Unknown]
  - Bronchitis [Unknown]
  - Malaise [Unknown]
  - Balance disorder [Unknown]
  - Rheumatoid arthritis [Unknown]
  - Dizziness [Unknown]
  - Joint swelling [Unknown]
  - Skin laceration [Unknown]
  - Ill-defined disorder [Unknown]
  - Sinusitis [Unknown]
